FAERS Safety Report 6708306-8 (Version None)
Quarter: 2010Q2

REPORT INFORMATION
  Report Type: 
  Country: None (occurrence: None)
  Receive Date: 20100503
  Receipt Date: 20090805
  Transmission Date: 20101027
  Serious: No
  Sender: FDA-Public Use
  Company Number: US-ASTRAZENECA-2009SE07053

PATIENT
  Age: 58 Year
  Sex: Male
  Weight: 125.6 kg

DRUGS (10)
  1. NEXIUM [Suspect]
     Route: 048
     Dates: start: 20090701, end: 20090803
  2. ATENOLOL [Interacting]
     Indication: BLOOD PRESSURE
  3. ATENOLOL [Interacting]
     Indication: HEART RATE
  4. ENALAPRIL MALEATE [Interacting]
     Indication: BLOOD PRESSURE
  5. ENALAPRIL MALEATE [Interacting]
     Indication: HEART RATE
  6. CLONIDINE [Interacting]
     Indication: BLOOD PRESSURE
  7. CLONIDINE [Interacting]
     Indication: HEART RATE
  8. SPIRONOLACTONE [Concomitant]
  9. XANAX [Concomitant]
     Indication: ANXIETY
  10. VERAPAMIL [Concomitant]

REACTIONS (6)
  - DRUG INTERACTION [None]
  - FATIGUE [None]
  - INFLUENZA LIKE ILLNESS [None]
  - INSOMNIA [None]
  - NERVOUSNESS [None]
  - TINNITUS [None]
